FAERS Safety Report 4840698-7 (Version None)
Quarter: 2005Q4

REPORT INFORMATION
  Report Type: 
  Country: None (occurrence: None)
  Receive Date: 20051130
  Receipt Date: 20051122
  Transmission Date: 20060501
  Serious: Yes (Other)
  Sender: FDA-Public Use
  Company Number: DE-JNJFOC-20051105511

PATIENT
  Sex: Female
  Weight: 46 kg

DRUGS (4)
  1. RISPERDAL [Suspect]
     Indication: DEPRESSION
     Route: 048
  2. MIRTAZAPINE [Suspect]
     Indication: DEPRESSION
     Route: 048
  3. CARBIMAZOL [Suspect]
     Indication: HYPERTHYROIDISM
     Route: 048
  4. DELIX [Suspect]
     Route: 048

REACTIONS (1)
  - AGRANULOCYTOSIS [None]
